FAERS Safety Report 9877912 (Version 4)
Quarter: 2014Q2

REPORT INFORMATION
  Report Type: Spontaneous
  Country: US (occurrence: US)
  Receive Date: 20140206
  Receipt Date: 20140530
  Transmission Date: 20141212
  Serious: Yes (Hospitalization, Other)
  Sender: FDA-Public Use
  Company Number: US-BAYER-2014-018549

PATIENT
  Age: 23 Year
  Sex: Female
  Weight: 79.37 kg

DRUGS (1)
  1. MIRENA [Suspect]
     Indication: CONTRACEPTION
     Dosage: 20 MCG/24HR, CONT
     Route: 015
     Dates: start: 20110304, end: 201301

REACTIONS (9)
  - Uterine perforation [None]
  - Bipolar disorder [None]
  - Depression [None]
  - Device issue [None]
  - Emotional distress [None]
  - Stress [None]
  - Injury [None]
  - Pain [None]
  - Anxiety [None]
